FAERS Safety Report 5042478-9 (Version None)
Quarter: 2006Q2

REPORT INFORMATION
  Report Type: 
  Country: None (occurrence: None)
  Receive Date: 20060627
  Receipt Date: 20060619
  Transmission Date: 20061013
  Serious: Yes (Death, Hospitalization)
  Sender: FDA-Public Use
  Company Number: GBWYE603405MAY06

PATIENT
  Age: 40 Year
  Sex: Male

DRUGS (2)
  1. EFFEXOR [Suspect]
     Indication: DEPRESSION
  2. PHENELZINE (PHENELZINE, , 0) [Suspect]

REACTIONS (6)
  - CARDIAC ARREST [None]
  - DRUG INTERACTION [None]
  - FEELING HOT [None]
  - HEART RATE IRREGULAR [None]
  - MEDICATION ERROR [None]
  - SEROTONIN SYNDROME [None]
